FAERS Safety Report 21886754 (Version 2)
Quarter: 2023Q1

REPORT INFORMATION
  Report Type: Spontaneous
  Country: FR (occurrence: FR)
  Receive Date: 20230119
  Receipt Date: 20230123
  Transmission Date: 20230418
  Serious: Yes (Other)
  Sender: FDA-Public Use
  Company Number: FR-AMGEN-FRASP2022210931

PATIENT
  Age: 21 Year
  Sex: Male

DRUGS (5)
  1. ADALIMUMAB [Suspect]
     Active Substance: ADALIMUMAB
     Indication: Crohn^s disease
     Dosage: UNK
     Route: 065
  2. INFLIXIMAB [Suspect]
     Active Substance: INFLIXIMAB
     Indication: Crohn^s disease
     Dosage: 5 MILLIGRAM/KILOGRAM AT WEEK 6
     Route: 065
  3. INFLIXIMAB [Suspect]
     Active Substance: INFLIXIMAB
     Indication: Chronic recurrent multifocal osteomyelitis
     Dosage: 5 MILLIGRAM/KILOGRAM AT WEEK 2
     Route: 065
  4. INFLIXIMAB [Suspect]
     Active Substance: INFLIXIMAB
     Dosage: 5 MILLIGRAM/KILOGRAM AT WEEK 0
     Route: 065
  5. INFLIXIMAB [Suspect]
     Active Substance: INFLIXIMAB
     Dosage: 5 MILLIGRAM/KILOGRAM PER 8 WEEK
     Route: 065

REACTIONS (9)
  - Multisystem inflammatory syndrome [Recovered/Resolved]
  - Chronic recurrent multifocal osteomyelitis [Recovering/Resolving]
  - Systemic inflammatory response syndrome [Recovered/Resolved]
  - Hyperleukocytosis [Unknown]
  - Gastroenteritis shigella [Recovered/Resolved]
  - Shigella infection [Recovering/Resolving]
  - Middle insomnia [Unknown]
  - Thrombocytosis [Unknown]
  - Off label use [Unknown]
